FAERS Safety Report 25214916 (Version 1)
Quarter: 2025Q2

REPORT INFORMATION
  Report Type: Spontaneous
  Country: GB (occurrence: GB)
  Receive Date: 20250418
  Receipt Date: 20250418
  Transmission Date: 20250717
  Serious: Yes (Other)
  Sender: BIOMARIN
  Company Number: None

PATIENT

DRUGS (2)
  1. NAGLAZYME [Suspect]
     Active Substance: GALSULFASE
     Indication: Product used for unknown indication
     Dosage: 10 MILLIGRAM, QOW
     Route: 065
     Dates: start: 20230413
  2. NAGLAZYME [Suspect]
     Active Substance: GALSULFASE
     Dosage: 15 MILLIGRAM, QOW
     Route: 065
     Dates: start: 20230413

REACTIONS (3)
  - Wheezing [Recovered/Resolved]
  - Stridor [Recovered/Resolved]
  - Dyspnoea [Recovered/Resolved]

NARRATIVE: CASE EVENT DATE: 20250327
